FAERS Safety Report 4279726-9 (Version None)
Quarter: 2004Q1

REPORT INFORMATION
  Report Type: 
  Country: None (occurrence: None)
  Receive Date: 20040127
  Receipt Date: 20030827
  Transmission Date: 20041129
  Serious: Yes (Hospitalization)
  Sender: FDA-Public Use
  Company Number: WAES 0308USA02704

PATIENT
  Age: 53 Year
  Sex: Male

DRUGS (4)
  1. TENORMIN [Concomitant]
     Route: 048
     Dates: start: 20010101
  2. CARDENALIN [Concomitant]
     Route: 048
     Dates: start: 20010101
  3. NOVOLIN N [Concomitant]
     Route: 058
  4. PRINIVIL [Suspect]
     Indication: HYPERTENSION
     Route: 048
     Dates: start: 20010101, end: 20030822

REACTIONS (2)
  - INTERSTITIAL LUNG DISEASE [None]
  - LYMPHOCYTE STIMULATION TEST POSITIVE [None]
